FAERS Safety Report 15386632 (Version 3)
Quarter: 2020Q2

REPORT INFORMATION
  Report Type: Spontaneous
  Country: US (occurrence: US)
  Receive Date: 20180914
  Receipt Date: 20200501
  Transmission Date: 20200713
  Serious: Yes (Hospitalization, Other)
  Sender: FDA-Public Use
  Company Number: US-ASTRAZENECA-2018SF15300

PATIENT
  Age: 18746 Day
  Sex: Female

DRUGS (1)
  1. ZOMIG [Suspect]
     Active Substance: ZOLMITRIPTAN
     Indication: MIGRAINE
     Dosage: 5 MG, 1 SPRAY IN NOSTRIL AT ONSET OF MIGRAINE, MAY REPEAT IN 2 HOURS. DO NOT EXCEED 10 MG PER DAY
     Route: 045
     Dates: start: 201711

REACTIONS (4)
  - Weight increased [Unknown]
  - Product dose omission [Unknown]
  - Therapeutic product effect incomplete [Unknown]
  - Migraine [Unknown]

NARRATIVE: CASE EVENT DATE: 20190110
